FAERS Safety Report 21023889 (Version 2)
Quarter: 2022Q3

REPORT INFORMATION
  Report Type: Spontaneous
  Country: BR (occurrence: BR)
  Receive Date: 20220629
  Receipt Date: 20220713
  Transmission Date: 20221026
  Serious: Yes (Other)
  Sender: FDA-Public Use
  Company Number: BR-NOVARTISPH-NVSC2022BR147192

PATIENT
  Sex: Male
  Weight: 120 kg

DRUGS (2)
  1. TEGRETOL [Suspect]
     Active Substance: CARBAMAZEPINE
     Indication: Product used for unknown indication
     Dosage: 400 MG (MORE THAN 20 YEARS AGO) 4 TIMES A DAY
     Route: 065
  2. RIVOTRIL [Concomitant]
     Active Substance: CLONAZEPAM
     Indication: Product used for unknown indication
     Dosage: 2.5 MG (2 PER DAY)
     Route: 065

REACTIONS (2)
  - Syncope [Unknown]
  - Drug ineffective [Unknown]
